FAERS Safety Report 6371413-6 (Version None)
Quarter: 2009Q3

REPORT INFORMATION
  Report Type: 
  Country: None (occurrence: None)
  Receive Date: 20090923
  Receipt Date: 20071113
  Transmission Date: 20100115
  Serious: Yes (Other)
  Sender: FDA-Public Use
  Company Number: US-ASTRAZENECA-2007UW09724

PATIENT
  Age: 13115 Day
  Sex: Male
  Weight: 68 kg

DRUGS (15)
  1. SEROQUEL [Suspect]
     Indication: DEPRESSION
     Route: 048
     Dates: start: 19980101, end: 20061231
  2. SEROQUEL [Suspect]
     Indication: SCHIZOPHRENIA
     Route: 048
     Dates: start: 19980101, end: 20061231
  3. SEROQUEL [Suspect]
     Dosage: 50-200MG
     Route: 048
  4. SEROQUEL [Suspect]
     Dosage: 50-200MG
     Route: 048
  5. HALDOL [Concomitant]
  6. COGENTIN [Concomitant]
  7. PAXIL [Concomitant]
  8. PROZAC [Concomitant]
  9. BENADRYL [Concomitant]
  10. LEXAPRO [Concomitant]
  11. RISPERDAL [Concomitant]
  12. ATIVAN [Concomitant]
  13. CYMBALTA [Concomitant]
  14. AMBIEN [Concomitant]
  15. TYLENOL (CAPLET) [Concomitant]

REACTIONS (2)
  - PANCREATITIS ACUTE [None]
  - TYPE 2 DIABETES MELLITUS [None]
